FAERS Safety Report 25886057 (Version 1)
Quarter: 2025Q4

REPORT INFORMATION
  Report Type: Spontaneous
  Country: US (occurrence: None)
  Receive Date: 20251003
  Receipt Date: 20251003
  Transmission Date: 20260118
  Serious: Yes (Hospitalization)
  Sender: FDA-CTU
  Company Number: None

PATIENT
  Sex: Female

DRUGS (2)
  1. ALVAIZ [Suspect]
     Active Substance: ELTROMBOPAG CHOLINE
     Indication: Immune thrombocytopenia
     Dosage: FREQUENCY : DAILY;?
     Route: 048
     Dates: start: 20250213
  2. DOPTELET [Concomitant]
     Active Substance: AVATROMBOPAG MALEATE

REACTIONS (3)
  - Head injury [None]
  - Platelet count decreased [None]
  - Syncope [None]
